FAERS Safety Report 19497539 (Version 3)
Quarter: 2021Q3

REPORT INFORMATION
  Report Type: Spontaneous
  Country: US (occurrence: US)
  Receive Date: 20210706
  Receipt Date: 20210806
  Transmission Date: 20211014
  Serious: Yes (Life-Threatening)
  Sender: FDA-Public Use
  Company Number: US-AMNEAL PHARMACEUTICALS-2021-AMRX-02418

PATIENT
  Age: 39 Year
  Sex: Female
  Weight: 100 kg

DRUGS (15)
  1. ELAGOLIX [Suspect]
     Active Substance: ELAGOLIX
     Indication: UTERINE LEIOMYOMA
     Dosage: 1 DOSAGE FORM, 2 /DAY (AM AND PM DOSE)
     Route: 048
     Dates: start: 20200730, end: 20210617
  2. VITAMIN D [COLECALCIFEROL] [Concomitant]
     Active Substance: CHOLECALCIFEROL
     Indication: VITAMIN D DECREASED
     Dosage: 1 DOSAGE FORM, 1 /WEEK
     Route: 048
     Dates: start: 201902
  3. IBUPROFEN. [Concomitant]
     Active Substance: IBUPROFEN
     Indication: MIGRAINE
  4. EXCEDRIN EXTRA STRENGTH [Concomitant]
     Active Substance: ACETAMINOPHEN\ASPIRIN\CAFFEINE
     Indication: DYSMENORRHOEA
     Dosage: 1 DOSAGE FORM, AS NEEDED
     Route: 048
     Dates: start: 201901
  5. MOTRIN [Concomitant]
     Active Substance: IBUPROFEN
     Indication: EYE PAIN
  6. EXCEDRIN EXTRA STRENGTH [Concomitant]
     Active Substance: ACETAMINOPHEN\ASPIRIN\CAFFEINE
     Indication: MIGRAINE
  7. FERROUS SULFATE. [Concomitant]
     Active Substance: FERROUS SULFATE
     Indication: BLOOD IRON DECREASED
     Dosage: 325 MILLIGRAM, 2 /DAY
     Route: 048
     Dates: start: 201903
  8. PRUNELAX [PRUNUS SPP.;SENNA SPP. LEAF] [Concomitant]
     Indication: CONSTIPATION
     Dosage: 1 TABLETS, AS NEEDED
     Route: 048
     Dates: start: 2014
  9. ATORVASTATIN [Concomitant]
     Active Substance: ATORVASTATIN
     Indication: HYPERLIPIDAEMIA
     Dosage: 40 MILLIGRAM, 1 /DAY
     Route: 048
     Dates: start: 20200730
  10. MOTRIN [Concomitant]
     Active Substance: IBUPROFEN
     Indication: HEADACHE
     Dosage: 800 MILLIGRAM, AS NEEDED
     Route: 048
     Dates: start: 20190701
  11. ELAGOLIX [Suspect]
     Active Substance: ELAGOLIX
     Dosage: 1 DOSAGE FORM, 2 /DAY (AM AND PM DOSE)
     Route: 048
     Dates: start: 20210622
  12. IBUPROFEN. [Concomitant]
     Active Substance: IBUPROFEN
     Indication: DYSMENORRHOEA
     Dosage: 800 MILLIGRAM, AS NEEDED
     Route: 048
     Dates: start: 201904
  13. ACTIVELLA [Suspect]
     Active Substance: ESTRADIOL\NORETHINDRONE ACETATE
     Indication: UTERINE LEIOMYOMA
     Dosage: 1 DOSAGE FORM, 1 /DAY
     Route: 048
     Dates: start: 20200730, end: 20210617
  14. ACTIVELLA [Suspect]
     Active Substance: ESTRADIOL\NORETHINDRONE ACETATE
     Dosage: 1 DOSAGE FORM, 1 /DAY
     Route: 048
     Dates: start: 20190816, end: 20200730
  15. ACTIVELLA [Suspect]
     Active Substance: ESTRADIOL\NORETHINDRONE ACETATE
     Dosage: 1 DOSAGE FORM, 1 /DAY
     Route: 048
     Dates: start: 20210622

REACTIONS (3)
  - Suicidal ideation [Recovered/Resolved]
  - Depression [Recovered/Resolved]
  - Depression [Not Recovered/Not Resolved]

NARRATIVE: CASE EVENT DATE: 20210501
